FAERS Safety Report 5906591-3 (Version None)
Quarter: 2008Q4

REPORT INFORMATION
  Report Type: 
  Country: None (occurrence: None)
  Receive Date: 20081002
  Receipt Date: 20080924
  Transmission Date: 20090506
  Serious: Yes (Hospitalization, Other)
  Sender: FDA-Public Use
  Company Number: US-ELI_LILLY_AND_COMPANY-US200806004675

PATIENT
  Sex: Female
  Weight: 89.342 kg

DRUGS (18)
  1. BYETTA [Suspect]
     Dosage: 5 UG, 2/D
     Route: 065
     Dates: start: 20070404, end: 20070601
  2. BYETTA [Suspect]
     Dosage: 10 UG, 2/D
     Route: 065
     Dates: start: 20070601, end: 20070901
  3. ATENOLOL [Concomitant]
     Dosage: 50 MG, DAILY (1/D)
     Route: 048
     Dates: start: 20070611
  4. CLONAZEPAM [Concomitant]
     Dosage: 1 MG, DAILY (1/D)
     Route: 048
     Dates: start: 20070611
  5. DULCOLAX [Concomitant]
     Dosage: 100 MG, DAILY (1/D)
     Route: 048
     Dates: start: 20070611
  6. EFFEXOR [Concomitant]
     Dosage: 150 MG, DAILY (1/D)
     Route: 048
     Dates: start: 20070611
  7. GLYBURIDE [Concomitant]
     Dosage: 5 MG, 2/D
     Route: 048
     Dates: start: 20070612
  8. HYDROXYZINE [Concomitant]
     Dosage: 25 MG, 4/D
     Route: 048
     Dates: start: 20070611
  9. KEPPRA [Concomitant]
     Dosage: 500 MG, 2/D
     Route: 048
     Dates: start: 20080506
  10. LIPITOR [Concomitant]
     Dosage: 10 MG, DAILY (1/D)
     Route: 048
     Dates: start: 20080617
  11. METFORMIN HCL [Concomitant]
     Dosage: 1000 MG, 2/D
     Route: 048
     Dates: start: 20070612
  12. NEURONTIN [Concomitant]
     Dosage: 400 MG, DAILY (1/D)
     Route: 048
     Dates: start: 20070611
  13. LOVAZA [Concomitant]
     Dosage: 180 MG, 4/D
     Route: 048
     Dates: start: 20070612
  14. PERCOCET [Concomitant]
     Dosage: UNK, EVERY 6 HRS
     Route: 048
     Dates: start: 20070611
  15. REGLAN [Concomitant]
     Dosage: 5 MG, 3/D
     Route: 048
     Dates: start: 20070611
  16. WELLBUTRIN [Concomitant]
     Dosage: 300 MG, DAILY (1/D)
     Route: 048
     Dates: start: 20070611
  17. ZYRTEC-D 12 HOUR [Concomitant]
     Dosage: 120 MG, DAILY (1/D)
     Route: 048
     Dates: start: 20070611
  18. ORAL ANTIDIABETICS [Concomitant]
     Dosage: UNK, UNKNOWN
     Route: 065

REACTIONS (2)
  - PANCREATITIS [None]
  - WEIGHT INCREASED [None]
